FAERS Safety Report 19111722 (Version 1)
Quarter: 2021Q2

REPORT INFORMATION
  Report Type: Spontaneous
  Country: US (occurrence: US)
  Receive Date: 20210409
  Receipt Date: 20210409
  Transmission Date: 20210717
  Serious: Yes (Hospitalization)
  Sender: FDA-Public Use
  Company Number: None

PATIENT
  Age: 57 Year
  Sex: Female
  Weight: 106.1 kg

DRUGS (3)
  1. TAXOL [Suspect]
     Active Substance: PACLITAXEL
     Dates: end: 20210330
  2. PERTUZUMAB. [Suspect]
     Active Substance: PERTUZUMAB
     Dates: end: 20210330
  3. HERCEPTIN [Suspect]
     Active Substance: TRASTUZUMAB
     Dates: end: 20210330

REACTIONS (9)
  - Hypercapnia [None]
  - Asthenia [None]
  - Memory impairment [None]
  - Ischaemia [None]
  - Somnolence [None]
  - Lethargy [None]
  - Hypoxia [None]
  - Pneumonia aspiration [None]
  - Accidental overdose [None]

NARRATIVE: CASE EVENT DATE: 20210330
